FAERS Safety Report 24984831 (Version 1)
Quarter: 2025Q1

REPORT INFORMATION
  Report Type: Spontaneous
  Country: US (occurrence: US)
  Receive Date: 20250219
  Receipt Date: 20250219
  Transmission Date: 20250409
  Serious: No
  Sender: AMGEN
  Company Number: US-AMGEN-USASP2025032598

PATIENT
  Age: 94 Year
  Sex: Female

DRUGS (6)
  1. PREDNISONE [Suspect]
     Active Substance: PREDNISONE
     Indication: Coeliac disease
     Route: 048
  2. LORATADINE [Concomitant]
     Active Substance: LORATADINE
     Indication: Coeliac disease
  3. TRIAMCINOLONE [Concomitant]
     Active Substance: TRIAMCINOLONE
     Indication: Coeliac disease
     Dosage: UNK UNK, BID
  4. DIPHENHYDRAMINE [Concomitant]
     Active Substance: DIPHENHYDRAMINE
     Indication: Coeliac disease
  5. HYDROCORTISONE [Concomitant]
     Active Substance: HYDROCORTISONE
     Indication: Coeliac disease
  6. CLOBETASOL [Concomitant]
     Active Substance: CLOBETASOL
     Indication: Coeliac disease

REACTIONS (5)
  - Insomnia [Unknown]
  - Anxiety [Unknown]
  - Antigliadin antibody positive [Unknown]
  - Drug ineffective for unapproved indication [Unknown]
  - Off label use [Unknown]
